FAERS Safety Report 8938584 (Version 3)
Quarter: 2013Q3

REPORT INFORMATION
  Report Type: Report from Study
  Country: DE (occurrence: DE)
  Receive Date: 20121203
  Receipt Date: 20130808
  Transmission Date: 20140515
  Serious: Yes (Life-Threatening)
  Sender: FDA-Public Use
  Company Number: PHHO2012DE017227

PATIENT
  Age: 56 Year
  Sex: Female
  Weight: 83 kg

DRUGS (4)
  1. EVEROLIMUS [Suspect]
     Indication: BREAST CANCER METASTATIC
     Dosage: 10 MG, BID
     Route: 048
     Dates: start: 20120921, end: 20121114
  2. EXEMESTANE [Suspect]
     Indication: BREAST CANCER METASTATIC
     Dosage: 25 MG, BID
     Route: 048
     Dates: start: 20120921, end: 20121114
  3. DUROGESIC [Concomitant]
     Indication: BONE PAIN
     Dosage: UNK
     Dates: start: 20120523
  4. FENTANYL [Concomitant]
     Indication: BONE PAIN
     Dosage: 50 UG/ML, UNK
     Dates: start: 20120523

REACTIONS (2)
  - Pulmonary congestion [Recovered/Resolved]
  - Orthopnoea [Recovered/Resolved]
